FAERS Safety Report 9795596 (Version 1)
Quarter: 2014Q1

REPORT INFORMATION
  Report Type: Spontaneous
  Country: US (occurrence: US)
  Receive Date: 20140103
  Receipt Date: 20140103
  Transmission Date: 20141002
  Serious: Yes (Other)
  Sender: FDA-Public Use
  Company Number: US-BAYER-2013-158106

PATIENT
  Age: 74 Year
  Sex: Female
  Weight: 58.05 kg

DRUGS (6)
  1. BAYER GENUINE ASPIRIN ORIGINAL STRENGTH [Suspect]
  2. COREG [Concomitant]
  3. HYDRALAZINE [Concomitant]
  4. LOSARTAN [Concomitant]
  5. CLONIDINE [Concomitant]
  6. SIMVASTATIN [Concomitant]

REACTIONS (3)
  - Thrombosis [None]
  - Vomiting [None]
  - Abdominal discomfort [None]
